FAERS Safety Report 15042641 (Version 1)
Quarter: 2018Q2

REPORT INFORMATION
  Report Type: Spontaneous
  Country: CA (occurrence: CA)
  Receive Date: 20180621
  Receipt Date: 20180621
  Transmission Date: 20180711
  Serious: Yes (Death)
  Sender: FDA-Public Use
  Company Number: CA-ASTRAZENECA-2018SE77651

PATIENT
  Sex: Female

DRUGS (8)
  1. FASLODEX [Suspect]
     Active Substance: FULVESTRANT
     Indication: PRODUCT USED FOR UNKNOWN INDICATION
     Route: 030
  2. NOVO-PRANOL [Suspect]
     Active Substance: PROPRANOLOL HYDROCHLORIDE
     Route: 065
  3. CALCIUM [Suspect]
     Active Substance: CALCIUM
     Dosage: DAILY
     Route: 065
  4. PAMIDRONATE DISODIUM. [Suspect]
     Active Substance: PAMIDRONATE DISODIUM
     Dosage: DAILY
     Route: 065
  5. PANTOPRAZOLE [Suspect]
     Active Substance: PANTOPRAZOLE
     Dosage: 1 EVERY 3 MONTH(S)
     Route: 065
  6. PANTOPRAZOLE [Suspect]
     Active Substance: PANTOPRAZOLE
     Route: 065
  7. VITAMIN D [Suspect]
     Active Substance: CHOLECALCIFEROL
     Route: 065
  8. MULTIVITAMINE(S) [Suspect]
     Active Substance: VITAMINS
     Dosage: DAILY
     Route: 065

REACTIONS (1)
  - Death [Fatal]
